FAERS Safety Report 4557994-3 (Version None)
Quarter: 2005Q1

REPORT INFORMATION
  Report Type: 
  Country: None (occurrence: None)
  Receive Date: 20050121
  Receipt Date: 20040421
  Transmission Date: 20050727
  Serious: No
  Sender: FDA-Public Use
  Company Number: US-BRISTOL-MYERS SQUIBB COMPANY-12568325

PATIENT
  Age: 34 Year
  Sex: Female
  Weight: 87 kg

DRUGS (4)
  1. SERZONE [Suspect]
     Route: 048
     Dates: start: 20010905, end: 20020401
  2. ZYRTEC [Concomitant]
  3. KLONOPIN [Concomitant]
  4. BECONASE [Concomitant]

REACTIONS (2)
  - ALANINE AMINOTRANSFERASE INCREASED [None]
  - ASPARTATE AMINOTRANSFERASE INCREASED [None]
